FAERS Safety Report 20892115 (Version 1)
Quarter: 2022Q2

REPORT INFORMATION
  Report Type: Spontaneous
  Country: US (occurrence: US)
  Receive Date: 20220530
  Receipt Date: 20220530
  Transmission Date: 20220721
  Serious: No
  Sender: FDA-Public Use
  Company Number: US-PFIZER INC-202200752327

PATIENT
  Age: 68 Year
  Sex: Female

DRUGS (1)
  1. SUTENT [Suspect]
     Active Substance: SUNITINIB MALATE
     Indication: Malignant neoplasm progression
     Dosage: 37.5 MG

REACTIONS (2)
  - Neoplasm progression [Unknown]
  - Off label use [Unknown]
